FAERS Safety Report 5925274-7 (Version None)
Quarter: 2008Q4

REPORT INFORMATION
  Report Type: 
  Country: None (occurrence: None)
  Receive Date: 20081020
  Receipt Date: 20081020
  Transmission Date: 20090506
  Serious: Yes (Hospitalization)
  Sender: FDA-Public Use
  Company Number: None

PATIENT
  Age: 60 Year
  Sex: Male
  Weight: 107 kg

DRUGS (4)
  1. TERAZOSIN HCL [Suspect]
     Indication: BENIGN PROSTATIC HYPERPLASIA
     Dosage: 4 MG HS PO; 50 MG BID PO
     Route: 048
     Dates: start: 20060823, end: 20081015
  2. TERAZOSIN HCL [Suspect]
     Indication: CORONARY ARTERY DISEASE
     Dosage: 4 MG HS PO; 50 MG BID PO
     Route: 048
     Dates: start: 20060823, end: 20081015
  3. TERAZOSIN HCL [Suspect]
     Indication: BENIGN PROSTATIC HYPERPLASIA
     Dosage: 4 MG HS PO; 50 MG BID PO
     Route: 048
     Dates: start: 20080213
  4. TERAZOSIN HCL [Suspect]
     Indication: CORONARY ARTERY DISEASE
     Dosage: 4 MG HS PO; 50 MG BID PO
     Route: 048
     Dates: start: 20080213

REACTIONS (1)
  - SYNCOPE [None]
